FAERS Safety Report 11024113 (Version 3)
Quarter: 2015Q2

REPORT INFORMATION
  Report Type: Report from Study
  Country: CA (occurrence: CA)
  Receive Date: 20150413
  Receipt Date: 20150602
  Transmission Date: 20150821
  Serious: Yes (Other)
  Sender: FDA-Public Use
  Company Number: PHHY2014CA064714

PATIENT
  Age: 69 Year
  Sex: Male

DRUGS (2)
  1. SANDOSTATIN [Suspect]
     Active Substance: OCTREOTIDE ACETATE
     Indication: NEUROENDOCRINE CARCINOMA
     Dosage: 100 UG, TEST DOSE, ONCE
     Route: 058
     Dates: start: 20140516, end: 20140516
  2. SANDOSTATIN LAR DEPOT [Suspect]
     Active Substance: OCTREOTIDE ACETATE
     Indication: NEUROENDOCRINE CARCINOMA
     Dosage: 30 MG, EVERY 4 WEEKS
     Route: 030
     Dates: start: 20140526

REACTIONS (13)
  - Basal cell carcinoma [Unknown]
  - Energy increased [Unknown]
  - Tinnitus [Recovered/Resolved]
  - Arthropathy [Recovered/Resolved]
  - Contusion [Unknown]
  - Constipation [Recovered/Resolved]
  - Second primary malignancy [Unknown]
  - Dry skin [Unknown]
  - Skin warm [Unknown]
  - Body temperature decreased [Unknown]
  - Diarrhoea [Recovered/Resolved]
  - Nausea [Recovered/Resolved]
  - Diarrhoea [Unknown]

NARRATIVE: CASE EVENT DATE: 2014
